FAERS Safety Report 19703971 (Version 1)
Quarter: 2021Q3

REPORT INFORMATION
  Report Type: Spontaneous
  Country: US (occurrence: US)
  Receive Date: 20210813
  Receipt Date: 20210813
  Transmission Date: 20211014
  Serious: Yes (Hospitalization)
  Sender: FDA-Public Use
  Company Number: None

PATIENT
  Age: 66 Year
  Sex: Male

DRUGS (13)
  1. ESOMEPRA MAG [Concomitant]
  2. MONTELUKAST [Concomitant]
     Active Substance: MONTELUKAST SODIUM
  3. MUCIPROCIN [Concomitant]
  4. COSENTYX [Suspect]
     Active Substance: SECUKINUMAB
     Indication: PSORIASIS
     Dosage: ?          OTHER FREQUENCY:EVERT 4 WEEKS;?
     Route: 058
     Dates: start: 20181228
  5. OMEPRAZOLE. [Concomitant]
     Active Substance: OMEPRAZOLE
  6. SPIRONOLACT [Concomitant]
     Active Substance: SPIRONOLACTONE
  7. OCALIVA [Concomitant]
     Active Substance: OBETICHOLIC ACID
  8. CYCLOBENZAPRINE. [Concomitant]
     Active Substance: CYCLOBENZAPRINE
  9. ALLPURINOL [Concomitant]
     Active Substance: ALLOPURINOL
  10. FUROSEMIDE. [Concomitant]
     Active Substance: FUROSEMIDE
  11. GABAPENTIN. [Concomitant]
     Active Substance: GABAPENTIN
  12. NITROFUR MAC [Concomitant]
     Active Substance: NITROFURANTOIN
  13. FISH OIL [Concomitant]
     Active Substance: FISH OIL

REACTIONS (2)
  - Hospitalisation [None]
  - Therapy interrupted [None]
